FAERS Safety Report 8402991-0 (Version None)
Quarter: 2012Q2

REPORT INFORMATION
  Report Type: 
  Country: None (occurrence: None)
  Receive Date: 20120601
  Receipt Date: 20120524
  Transmission Date: 20120825
  Serious: Yes (Hospitalization)
  Sender: FDA-Public Use
  Company Number: US-ABBOTT-12P-163-0939231-00

PATIENT
  Sex: Male
  Weight: 67.646 kg

DRUGS (7)
  1. SIMVASTATIN [Concomitant]
     Indication: HYPERLIPIDAEMIA
  2. FISH OIL [Concomitant]
     Indication: SUPPLEMENTATION THERAPY
  3. HUMIRA [Suspect]
     Dates: start: 20120523
  4. ATENOLOL [Concomitant]
     Indication: CORONARY ARTERY DISEASE
  5. AMLODIPINE [Concomitant]
     Indication: HYPERTENSION
  6. FOLIC ACID [Concomitant]
     Indication: VITAMIN SUPPLEMENTATION
  7. HUMIRA [Suspect]
     Indication: ANKYLOSING SPONDYLITIS
     Dates: start: 20070101, end: 20100101

REACTIONS (8)
  - ATRIOVENTRICULAR BLOCK [None]
  - INJECTION SITE PAIN [None]
  - INJECTION SITE NODULE [None]
  - CHEST PAIN [None]
  - MYCOBACTERIUM MARINUM INFECTION [None]
  - LACERATION [None]
  - DYSPNOEA [None]
  - GOUT [None]
